FAERS Safety Report 16774424 (Version 1)
Quarter: 2019Q3

REPORT INFORMATION
  Report Type: Spontaneous
  Country: GB (occurrence: GB)
  Receive Date: 20190905
  Receipt Date: 20190905
  Transmission Date: 20191005
  Serious: Yes (Life-Threatening)
  Sender: FDA-Public Use
  Company Number: GB-TEVA-2019-GB-1101303

PATIENT
  Age: 68 Year
  Sex: Female
  Weight: 63 kg

DRUGS (15)
  1. EVOREL [Concomitant]
     Dosage: APPLY AS DIRECTED
     Dates: start: 20190318
  2. ALENDRONIC ACID [Concomitant]
     Active Substance: ALENDRONIC ACID
     Dosage: 1 DF
     Dates: start: 20190111, end: 20190509
  3. OXYBUTYNIN. [Suspect]
     Active Substance: OXYBUTYNIN CHLORIDE
     Dosage: 5 MG
     Route: 065
     Dates: start: 20190522, end: 20190621
  4. SERETIDE [Concomitant]
     Active Substance: FLUTICASONE PROPIONATE\SALMETEROL XINAFOATE
     Dosage: 4 DF
     Route: 055
     Dates: start: 20190509
  5. SERTRALINE [Concomitant]
     Active Substance: SERTRALINE HYDROCHLORIDE
     Dosage: 1 DF
     Dates: start: 20190111
  6. ACCRETE D3 [Concomitant]
     Active Substance: CALCIUM CARBONATE\CHOLECALCIFEROL
     Dosage: 2 DF
     Dates: start: 20190111
  7. LANSOPRAZOLE. [Concomitant]
     Active Substance: LANSOPRAZOLE
     Dosage: 1 DF
     Dates: start: 20190111
  8. FUROSEMIDE. [Concomitant]
     Active Substance: FUROSEMIDE
     Dosage: MORNING, 1 DF
     Route: 065
     Dates: start: 20190730
  9. ESTRADIOL. [Concomitant]
     Active Substance: ESTRADIOL
     Dosage: TAKE DAILY AT NIGHT FOR 2/52 AND THEN TWO TO
     Dates: start: 20190320
  10. LACTULOSE. [Concomitant]
     Active Substance: LACTULOSE
     Dosage: 30 ML
     Dates: start: 20190730
  11. OXYBUTYNIN. [Suspect]
     Active Substance: OXYBUTYNIN CHLORIDE
     Dosage: 5 MG
     Route: 065
     Dates: start: 20190802
  12. MIRABEGRON [Concomitant]
     Active Substance: MIRABEGRON
     Dosage: AT NIGHT AS DIRECTED BY UROLOGY, 1 DF
     Route: 065
     Dates: start: 20190730
  13. GABAPENTIN. [Concomitant]
     Active Substance: GABAPENTIN
     Dosage: 2 DF
     Dates: start: 20190509, end: 20190704
  14. LEVOTHYROXINE. [Concomitant]
     Active Substance: LEVOTHYROXINE
     Dosage: 1 DF
     Dates: start: 20190111
  15. CODEINE PHOSPHATE [Concomitant]
     Active Substance: CODEINE PHOSPHATE
     Dosage: 6 DF
     Route: 065
     Dates: start: 20190111

REACTIONS (1)
  - Swollen tongue [Recovered/Resolved]

NARRATIVE: CASE EVENT DATE: 20190802
